FAERS Safety Report 25379456 (Version 1)
Quarter: 2025Q2

REPORT INFORMATION
  Report Type: Report from Study
  Country: CA (occurrence: CA)
  Receive Date: 20250530
  Receipt Date: 20250530
  Transmission Date: 20250717
  Serious: Yes (Death, Other)
  Sender: CSL BEHRING
  Company Number: CA-Vifor (International) Inc.-VIT-2024-05031

PATIENT
  Sex: Male

DRUGS (2)
  1. VELPHORO [Suspect]
     Active Substance: SUCROFERRIC OXYHYDROXIDE
     Indication: Product used for unknown indication
     Dosage: 2,DF,TID
     Route: 048
  2. VELPHORO [Suspect]
     Active Substance: SUCROFERRIC OXYHYDROXIDE
     Dosage: 500MG (2 TABLETS A DAY WITH LUNCH)
     Route: 048

REACTIONS (3)
  - Death [Fatal]
  - Thyroid operation [Unknown]
  - Product dose omission issue [Unknown]
